FAERS Safety Report 18765778 (Version 1)
Quarter: 2021Q1

REPORT INFORMATION
  Report Type: Spontaneous
  Country: ES (occurrence: ES)
  Receive Date: 20210120
  Receipt Date: 20210120
  Transmission Date: 20210419
  Serious: Yes (Hospitalization)
  Sender: FDA-Public Use
  Company Number: ES-FRESENIUS KABI-FK202100729

PATIENT
  Age: 71 Year
  Sex: Female

DRUGS (1)
  1. LIDOCAINE / EPINEPHRINE 2% (MANUFACTURER UNKNOWN) [Suspect]
     Active Substance: EPINEPHRINE\LIDOCAINE
     Indication: ENDODONTIC PROCEDURE
     Dosage: LIDOCAINE 2 PERCENT AND EPINEPHRINE
     Route: 050

REACTIONS (2)
  - Coronary artery thrombosis [Recovered/Resolved]
  - Incorrect route of product administration [Recovered/Resolved]
